FAERS Safety Report 11117433 (Version 1)
Quarter: 2015Q2

REPORT INFORMATION
  Report Type: Spontaneous
  Country: CA (occurrence: CA)
  Receive Date: 20150516
  Receipt Date: 20150516
  Transmission Date: 20150821
  Serious: Yes (Hospitalization, Other)
  Sender: FDA-Public Use
  Company Number: CA-B.I. PHARMACEUTICALS,INC./RIDGEFIELD-2015-BI-25121CN

PATIENT
  Sex: Male

DRUGS (1)
  1. PRADAXA [Suspect]
     Active Substance: DABIGATRAN ETEXILATE MESYLATE
     Indication: ANTICOAGULANT THERAPY
     Route: 065
     Dates: start: 201401

REACTIONS (11)
  - Blindness unilateral [Recovered/Resolved]
  - Nightmare [Unknown]
  - Epistaxis [Not Recovered/Not Resolved]
  - Eye haemorrhage [Unknown]
  - Pain [Unknown]
  - Hyperaesthesia [Not Recovered/Not Resolved]
  - Poor peripheral circulation [Unknown]
  - Night sweats [Unknown]
  - Pain in extremity [Not Recovered/Not Resolved]
  - Skin discolouration [Unknown]
  - Pain [Not Recovered/Not Resolved]

NARRATIVE: CASE EVENT DATE: 201409
